FAERS Safety Report 25382576 (Version 2)
Quarter: 2025Q3

REPORT INFORMATION
  Report Type: Spontaneous
  Country: BR (occurrence: BR)
  Receive Date: 20250601
  Receipt Date: 20250708
  Transmission Date: 20251021
  Serious: No
  Sender: JOHNSON AND JOHNSON
  Company Number: BR-JNJFOC-20250533649

PATIENT
  Age: 28 Year
  Sex: Male

DRUGS (1)
  1. SIMPONI [Suspect]
     Active Substance: GOLIMUMAB
     Indication: Axial spondyloarthritis
     Route: 058

REACTIONS (2)
  - Device leakage [Unknown]
  - Underdose [Unknown]

NARRATIVE: CASE EVENT DATE: 20250526
